FAERS Safety Report 23774084 (Version 1)
Quarter: 2024Q2

REPORT INFORMATION
  Report Type: Report from Study
  Country: US (occurrence: US)
  Receive Date: 20240423
  Receipt Date: 20240423
  Transmission Date: 20240716
  Serious: Yes (Other)
  Sender: FDA-Public Use
  Company Number: US-JNJFOC-20240453827

PATIENT

DRUGS (2)
  1. REMICADE [Suspect]
     Active Substance: INFLIXIMAB
     Indication: Crohn^s disease
     Dosage: HIGH DOSE
     Route: 041
  2. REMICADE [Suspect]
     Active Substance: INFLIXIMAB
     Dosage: STANDARD DOSE RECEIVED 5-6 MG/KG DOSE
     Route: 041

REACTIONS (3)
  - Clostridium difficile infection [Unknown]
  - Acute kidney injury [Unknown]
  - Embolism venous [Unknown]
